FAERS Safety Report 7685799-3 (Version None)
Quarter: 2011Q3

REPORT INFORMATION
  Report Type: 
  Country: None (occurrence: None)
  Receive Date: 20110815
  Receipt Date: 20110815
  Transmission Date: 20111222
  Serious: Yes (Hospitalization)
  Sender: FDA-Public Use
  Company Number: None

PATIENT
  Age: 33 Year
  Sex: Female
  Weight: 100.24 kg

DRUGS (1)
  1. GENERIC FOR BACTRIM DS [Suspect]
     Indication: URINARY TRACT INFECTION
     Dosage: ONE PILL
     Route: 048
     Dates: start: 20110719, end: 20110719

REACTIONS (4)
  - SWOLLEN TONGUE [None]
  - LIP SWELLING [None]
  - PHARYNGEAL OEDEMA [None]
  - OEDEMA MOUTH [None]
